FAERS Safety Report 5386094-8 (Version None)
Quarter: 2007Q3

REPORT INFORMATION
  Report Type: 
  Country: None (occurrence: None)
  Receive Date: 20070710
  Receipt Date: 20070404
  Transmission Date: 20080115
  Serious: Yes (Other)
  Sender: FDA-Public Use
  Company Number: 8025263

PATIENT
  Age: 61 Year
  Sex: Male

DRUGS (3)
  1. KEPPRA [Suspect]
     Dosage: 500 MG /D PO
     Route: 048
  2. COLCHICUM JTL LIQ [Suspect]
  3. PHENYTOIN [Suspect]

REACTIONS (1)
  - NEUTROPENIA [None]
